FAERS Safety Report 16196268 (Version 1)
Quarter: 2019Q2

REPORT INFORMATION
  Report Type: Spontaneous
  Country: US (occurrence: US)
  Receive Date: 20190415
  Receipt Date: 20190415
  Transmission Date: 20190711
  Serious: Yes (Other)
  Sender: FDA-Public Use
  Company Number: US-RECKITT BENCKISER HEALTHCARE INT LIMITED-RB-83836-2019

PATIENT
  Age: 39 Year
  Sex: Male

DRUGS (1)
  1. MUCINEX DM [Suspect]
     Active Substance: DEXTROMETHORPHAN HYDROBROMIDE\GUAIFENESIN
     Indication: PRODUCT USED FOR UNKNOWN INDICATION
     Dosage: 600 MILLIGRAM, SINGLE
     Route: 065

REACTIONS (8)
  - Vision blurred [Unknown]
  - Hallucination [Unknown]
  - Discomfort [Unknown]
  - Paraesthesia [Unknown]
  - Dyspnoea [Unknown]
  - Heart rate abnormal [Unknown]
  - Anxiety [Unknown]
  - Feeling abnormal [Unknown]
